FAERS Safety Report 6474244-1 (Version None)
Quarter: 2009Q4

REPORT INFORMATION
  Report Type: 
  Country: None (occurrence: None)
  Receive Date: 20091204
  Receipt Date: 20091124
  Transmission Date: 20100525
  Serious: Yes (Death, Life-Threatening, Hospitalization, Other)
  Sender: FDA-Public Use
  Company Number: PHEH2009US09920

PATIENT
  Sex: Female
  Weight: 63.5 kg

DRUGS (22)
  1. TEKTURNA [Suspect]
     Indication: HYPERTENSION
     Dosage: 150 MG, QD
     Route: 048
     Dates: start: 20090817, end: 20090820
  2. AVALIDE [Concomitant]
     Indication: BLOOD PRESSURE MANAGEMENT
     Dosage: 300/25MG, QHS
     Route: 048
     Dates: start: 20070618
  3. TOPROL-XL [Concomitant]
     Dosage: 50 MG, BID
     Route: 048
     Dates: start: 20050121
  4. TENEX [Concomitant]
     Dosage: 2 TABLETS, DAILY
     Route: 048
     Dates: start: 20050121
  5. NSAID'S [Concomitant]
  6. ACETAMINOPHEN [Concomitant]
  7. LEVOTHROID [Concomitant]
     Dosage: 50 MCG Q DAY
  8. FOLIC ACID [Concomitant]
     Dosage: QD
  9. GLIPIZIDE [Concomitant]
     Dosage: 5 MG, TID
  10. CALCIUM WITH VITAMIN D [Concomitant]
     Dosage: 2 TAB QD
  11. OGEN [Concomitant]
     Dosage: 1.25 QD
  12. VOLTAREN                           /00372303/ [Concomitant]
     Dosage: 75 MG, BID
  13. TYLENOL PM, EXTRA STRENGTH [Concomitant]
     Dosage: Q HS
  14. NITRODUR II [Concomitant]
     Dosage: 0.4 MG/HR PATCH
  15. ASPIRIN [Concomitant]
     Dosage: 81 MG, QD
  16. NITROGLYCERIN [Concomitant]
     Dosage: PRN
  17. SINGULAIR [Concomitant]
     Dosage: 10 MG, QHS
  18. XOPENEX [Concomitant]
     Dosage: PRN
  19. MAG-OX [Concomitant]
     Dosage: 400 MG, QD
  20. SPIRIVA [Concomitant]
     Dosage: DAILY
  21. BACTRIM DS [Concomitant]
     Dosage: 800-160 MG BID TIMES 7 DAYS
  22. IBUPROFEN [Concomitant]
     Dosage: 200 MG 2 TABS THREE TIMES DAILY

REACTIONS (27)
  - ATRIAL FIBRILLATION [None]
  - BLOOD ALBUMIN DECREASED [None]
  - BLOOD CREATININE INCREASED [None]
  - BLOOD GLUCOSE INCREASED [None]
  - BLOOD MAGNESIUM DECREASED [None]
  - BLOOD POTASSIUM INCREASED [None]
  - BLOOD SODIUM DECREASED [None]
  - BLOOD UREA INCREASED [None]
  - BRADYCARDIA [None]
  - BRAIN NATRIURETIC PEPTIDE INCREASED [None]
  - BUNDLE BRANCH BLOCK LEFT [None]
  - CARBON DIOXIDE DECREASED [None]
  - DIASTOLIC DYSFUNCTION [None]
  - DIZZINESS [None]
  - DYSPNOEA [None]
  - GAMMA-GLUTAMYLTRANSFERASE INCREASED [None]
  - GLOMERULAR FILTRATION RATE DECREASED [None]
  - LIVER FUNCTION TEST ABNORMAL [None]
  - MEAN PLATELET VOLUME DECREASED [None]
  - METAMYELOCYTE COUNT INCREASED [None]
  - MONOCYTE COUNT DECREASED [None]
  - PALPITATIONS [None]
  - PROTEIN TOTAL DECREASED [None]
  - RENAL ARTERY STENOSIS [None]
  - SYNCOPE [None]
  - VENTRICULAR EXTRASYSTOLES [None]
  - VENTRICULAR HYPERTROPHY [None]
